FAERS Safety Report 7900916-5 (Version None)
Quarter: 2011Q4

REPORT INFORMATION
  Report Type: 
  Country: None (occurrence: None)
  Receive Date: 20111108
  Receipt Date: 20111025
  Transmission Date: 20120403
  Serious: Yes (Death, Hospitalization, Other)
  Sender: FDA-Public Use
  Company Number: TR-ELI_LILLY_AND_COMPANY-TR201110007274

PATIENT
  Age: 34 Year
  Sex: Female

DRUGS (1)
  1. OLANZAPINE [Suspect]
     Dosage: 600 MG, SINGLE
     Route: 048

REACTIONS (3)
  - COMPLETED SUICIDE [None]
  - HYPERGLYCAEMIA [None]
  - INTENTIONAL OVERDOSE [None]
